FAERS Safety Report 22655614 (Version 1)
Quarter: 2023Q2

REPORT INFORMATION
  Report Type: Spontaneous
  Country: US (occurrence: None)
  Receive Date: 20230629
  Receipt Date: 20230629
  Transmission Date: 20230722
  Serious: Yes (Hospitalization)
  Sender: FDA-Public Use
  Company Number: None

PATIENT
  Sex: Female

DRUGS (1)
  1. PIRFENIDONE [Suspect]
     Active Substance: PIRFENIDONE
     Indication: Idiopathic pulmonary fibrosis
     Dosage: 801MG TID ORAL?
     Route: 048
     Dates: start: 202303

REACTIONS (6)
  - Nausea [None]
  - Diarrhoea [None]
  - Pneumonia [None]
  - Chronic obstructive pulmonary disease [None]
  - Aortic aneurysm [None]
  - Lung neoplasm malignant [None]
